FAERS Safety Report 7595585-0 (Version None)
Quarter: 2011Q3

REPORT INFORMATION
  Report Type: 
  Country: None (occurrence: None)
  Receive Date: 20110707
  Receipt Date: 20110628
  Transmission Date: 20111222
  Serious: Yes (Other)
  Sender: FDA-Public Use
  Company Number: AR-GLAXOSMITHKLINE-A0935003A

PATIENT
  Sex: Female

DRUGS (2)
  1. NARATRIPTAN [Suspect]
     Indication: CLUSTER HEADACHE
     Dosage: 2.5MG AT NIGHT
     Route: 065
  2. OXYGEN [Concomitant]
     Indication: CLUSTER HEADACHE

REACTIONS (5)
  - DRUG INEFFECTIVE [None]
  - CONDITION AGGRAVATED [None]
  - VISUAL ACUITY REDUCED [None]
  - HEADACHE [None]
  - HYPERMETROPIA [None]
